FAERS Safety Report 6540808-X (Version None)
Quarter: 2010Q1

REPORT INFORMATION
  Report Type: 
  Country: None (occurrence: None)
  Receive Date: 20100118
  Receipt Date: 20091218
  Transmission Date: 20100710
  Serious: No
  Sender: FDA-Public Use
  Company Number: US-BAYER-201010088BCC

PATIENT
  Sex: Male

DRUGS (2)
  1. ALEVE (CAPLET) [Suspect]
     Indication: HEADACHE
     Route: 048
     Dates: start: 20091201, end: 20091201
  2. VOLTAREN [Suspect]
     Indication: OEDEMA PERIPHERAL
     Route: 061
     Dates: start: 20091101

REACTIONS (1)
  - RASH [None]
